FAERS Safety Report 8930489 (Version 3)
Quarter: 2014Q1

REPORT INFORMATION
  Report Type: Spontaneous
  Country: US (occurrence: US)
  Receive Date: 20121128
  Receipt Date: 20140129
  Transmission Date: 20141002
  Serious: Yes (Hospitalization, Other)
  Sender: FDA-Public Use
  Company Number: US-BAYER-2012-124715

PATIENT
  Age: 20 Year
  Sex: Female

DRUGS (3)
  1. YASMIN [Suspect]
     Indication: MENSTRUAL CYCLE MANAGEMENT
     Dosage: UNK
     Dates: start: 20070213, end: 200809
  2. OCELLA [Suspect]
     Indication: MENSTRUAL CYCLE MANAGEMENT
     Dosage: UNK
     Dates: start: 20081013, end: 201002
  3. HYDROCORTISONE [Concomitant]
     Dosage: 2.5 %, UNK
     Route: 061
     Dates: start: 20091012

REACTIONS (6)
  - Cholecystitis [None]
  - Gallbladder disorder [None]
  - Injury [None]
  - Pain [None]
  - Abdominal pain [None]
  - Off label use [None]
